FAERS Safety Report 23151363 (Version 1)
Quarter: 2023Q4

REPORT INFORMATION
  Report Type: Spontaneous
  Country: RO (occurrence: RO)
  Receive Date: 20231107
  Receipt Date: 20231107
  Transmission Date: 20240109
  Serious: Yes (Hospitalization)
  Sender: FDA-Public Use
  Company Number: RO-STERISCIENCE B.V.-2023-ST-002113

PATIENT
  Age: 17 Year
  Sex: Male

DRUGS (1)
  1. BUPIVACAINE [Suspect]
     Active Substance: BUPIVACAINE
     Indication: General anaesthesia
     Dosage: 10 MILLILITER
     Route: 065

REACTIONS (2)
  - Penile vascular disorder [Recovered/Resolved]
  - Ischaemia [Recovered/Resolved]
